FAERS Safety Report 17150238 (Version 1)
Quarter: 2019Q4

REPORT INFORMATION
  Report Type: Spontaneous
  Country: US (occurrence: US)
  Receive Date: 20191120
  Receipt Date: 20191120
  Transmission Date: 20200122
  Serious: Yes (Hospitalization)
  Sender: FDA-Public Use
  Company Number: None

PATIENT
  Sex: Male

DRUGS (6)
  1. CARVEDILOL. [Concomitant]
     Active Substance: CARVEDILOL
  2. ENVARSUS XR [Concomitant]
     Active Substance: TACROLIMUS
  3. AMLODIPINE [Concomitant]
     Active Substance: AMLODIPINE BESYLATE
  4. MYCOPHENOLIC 360MG [Suspect]
     Active Substance: MYCOPHENOLIC ACID
     Indication: LIVER TRANSPLANT
     Dosage: ?          OTHER FREQUENCY:Q12HRS ;?
     Route: 048
     Dates: start: 20180809
  5. BUPROPION. [Concomitant]
     Active Substance: BUPROPION
  6. CONTOUR TES NEXT [Concomitant]

REACTIONS (2)
  - Liver transplant rejection [None]
  - Memory impairment [None]
